FAERS Safety Report 14946560 (Version 2)
Quarter: 2018Q3

REPORT INFORMATION
  Report Type: Report from Study
  Country: JP (occurrence: JP)
  Receive Date: 20180529
  Receipt Date: 20180829
  Transmission Date: 20181010
  Serious: Yes (Death, Hospitalization, Other)
  Sender: FDA-Public Use
  Company Number: JP-SA-2018SA111683

PATIENT
  Age: 76 Year
  Sex: Male
  Weight: 44 kg

DRUGS (10)
  1. AFLIBERCEPT [Suspect]
     Active Substance: AFLIBERCEPT
     Indication: METASTASES TO LIVER
  2. IRINOTECAN HYDROCHLORIDE. [Suspect]
     Active Substance: IRINOTECAN HYDROCHLORIDE
     Indication: RECTAL CANCER
     Dosage: 200 UNK, Q3W
     Route: 041
     Dates: start: 20170612
  3. AFLIBERCEPT [Suspect]
     Active Substance: AFLIBERCEPT
     Indication: RECTAL CANCER
     Dosage: 230.4 UNK, Q3W
     Route: 041
     Dates: start: 20170612
  4. CALCIUM LEVOFOLINATE [Concomitant]
     Active Substance: LEVOLEUCOVORIN CALCIUM
     Indication: RECTAL CANCER
     Dosage: 328 UNK, Q3W
     Route: 042
     Dates: start: 20170612
  5. GRANISETRON [Concomitant]
     Active Substance: GRANISETRON
     Indication: PREMEDICATION
     Dosage: EVERY ADMINISTRATION OF ZALTRAP
     Route: 065
  6. IRINOTECAN HYDROCHLORIDE. [Suspect]
     Active Substance: IRINOTECAN HYDROCHLORIDE
     Indication: METASTASES TO LIVER
  7. CALCIUM LEVOFOLINATE [Concomitant]
     Active Substance: LEVOLEUCOVORIN CALCIUM
     Indication: METASTASES TO LIVER
  8. DEXART [Concomitant]
     Active Substance: DEXAMETHASONE SODIUM PHOSPHATE
     Indication: PREMEDICATION
     Dosage: EVERY ADMINISTRATION OF ZALTRAP
     Route: 065
  9. FLUOROURACIL. [Suspect]
     Active Substance: FLUOROURACIL
     Indication: RECTAL CANCER
     Dosage: 523 UNK, Q3W
     Route: 041
     Dates: start: 20170612
  10. FLUOROURACIL. [Suspect]
     Active Substance: FLUOROURACIL
     Indication: METASTASES TO LIVER

REACTIONS (8)
  - Neutrophil count decreased [Recovered/Resolved]
  - Decreased appetite [Recovering/Resolving]
  - White blood cell count decreased [Recovered/Resolved]
  - Anaemia [Unknown]
  - Neuropathy peripheral [Recovering/Resolving]
  - Stomatitis [Recovering/Resolving]
  - Renal impairment [Recovering/Resolving]
  - Neutropenia [Recovering/Resolving]

NARRATIVE: CASE EVENT DATE: 20170619
